FAERS Safety Report 16682866 (Version 2)
Quarter: 2021Q1

REPORT INFORMATION
  Report Type: Spontaneous
  Country: CA (occurrence: CA)
  Receive Date: 20190808
  Receipt Date: 20210120
  Transmission Date: 20210419
  Serious: Yes (Other)
  Sender: FDA-Public Use
  Company Number: CA-SAMSUNG BIOEPIS-SB-2019-21888

PATIENT
  Age: 50 Year
  Sex: Female

DRUGS (2)
  1. INFLIXIMAB [Suspect]
     Active Substance: INFLIXIMAB
     Indication: COLITIS
     Route: 042
  2. INFLIXIMAB [Suspect]
     Active Substance: INFLIXIMAB
     Indication: COLITIS ULCERATIVE
     Route: 042

REACTIONS (16)
  - Nausea [Recovered/Resolved]
  - Product use issue [Recovered/Resolved]
  - Blood pressure fluctuation [Recovered/Resolved]
  - Hernia [Recovered/Resolved]
  - Nasopharyngitis [Recovered/Resolved]
  - Drug level decreased [Recovered/Resolved]
  - Rhinorrhoea [Recovered/Resolved]
  - Abdominal pain [Recovered/Resolved]
  - Oxygen saturation decreased [Recovered/Resolved]
  - Drug specific antibody present [Recovered/Resolved]
  - Drug ineffective [Recovered/Resolved]
  - Off label use [Recovered/Resolved]
  - Nasal congestion [Recovered/Resolved]
  - Pyrexia [Recovered/Resolved]
  - Product use in unapproved indication [Unknown]
  - Headache [Recovered/Resolved]
